FAERS Safety Report 6422050-6 (Version None)
Quarter: 2009Q4

REPORT INFORMATION
  Report Type: 
  Country: None (occurrence: None)
  Receive Date: 20091030
  Receipt Date: 20091020
  Transmission Date: 20100525
  Serious: Yes (Hospitalization)
  Sender: FDA-Public Use
  Company Number: US-ABBOTT-09P-163-0603735-00

PATIENT
  Sex: Female
  Weight: 79.45 kg

DRUGS (22)
  1. HUMIRA [Suspect]
     Indication: RHEUMATOID ARTHRITIS
     Route: 058
     Dates: start: 20090601
  2. DIAZIDE [Concomitant]
     Indication: DRUG USE FOR UNKNOWN INDICATION
     Dosage: 37.5/25MG, 1/2 TAB AND 1 TAB ALTERNATING DAYS
  3. PLAQUENIL [Concomitant]
     Indication: DRUG USE FOR UNKNOWN INDICATION
  4. MELOXICAM [Concomitant]
     Indication: DRUG USE FOR UNKNOWN INDICATION
  5. PREDNISONE [Concomitant]
     Indication: DRUG USE FOR UNKNOWN INDICATION
  6. POTASSIUM CHLORIDE [Concomitant]
     Indication: DRUG USE FOR UNKNOWN INDICATION
  7. CRESTOR [Concomitant]
     Indication: DRUG USE FOR UNKNOWN INDICATION
  8. TOPAMAX [Concomitant]
     Indication: DRUG USE FOR UNKNOWN INDICATION
     Dosage: 25MG QAM, 50MG QPM
  9. CYMBALTA [Concomitant]
     Indication: DRUG USE FOR UNKNOWN INDICATION
  10. PRILOSEC [Concomitant]
     Indication: DRUG USE FOR UNKNOWN INDICATION
  11. PLAVIX [Concomitant]
     Indication: DRUG USE FOR UNKNOWN INDICATION
  12. FOSAMAX [Concomitant]
     Indication: DRUG USE FOR UNKNOWN INDICATION
  13. PERCOCET [Concomitant]
     Indication: DRUG USE FOR UNKNOWN INDICATION
  14. METHADONE [Concomitant]
     Indication: DRUG USE FOR UNKNOWN INDICATION
  15. ASPIRIN [Concomitant]
     Indication: DRUG USE FOR UNKNOWN INDICATION
  16. NITRO-BID [Concomitant]
     Indication: DRUG USE FOR UNKNOWN INDICATION
  17. NITROGLYCERIN [Concomitant]
     Indication: DRUG USE FOR UNKNOWN INDICATION
  18. VIT D [Concomitant]
     Indication: DRUG USE FOR UNKNOWN INDICATION
  19. FLEXERIL [Concomitant]
     Indication: DRUG USE FOR UNKNOWN INDICATION
  20. AMBIEN [Concomitant]
     Indication: DRUG USE FOR UNKNOWN INDICATION
  21. ATIVAN [Concomitant]
     Indication: DRUG USE FOR UNKNOWN INDICATION
  22. MIRALAX [Concomitant]
     Indication: DRUG USE FOR UNKNOWN INDICATION

REACTIONS (3)
  - BLOOD CREATINE PHOSPHOKINASE INCREASED [None]
  - BLOOD PRESSURE INCREASED [None]
  - CHEST PAIN [None]
